FAERS Safety Report 18776300 (Version 3)
Quarter: 2021Q2

REPORT INFORMATION
  Report Type: Spontaneous
  Country: CN (occurrence: CN)
  Receive Date: 20210122
  Receipt Date: 20210604
  Transmission Date: 20210717
  Serious: Yes (Death, Hospitalization, Other)
  Sender: FDA-Public Use
  Company Number: CN-PFIZER INC-2021048738

PATIENT

DRUGS (1)
  1. CELEBREX [Suspect]
     Active Substance: CELECOXIB
     Indication: INTERVERTEBRAL DISC PROTRUSION
     Dosage: UNK
     Dates: start: 20200902

REACTIONS (21)
  - Respiratory arrest [Fatal]
  - Atrial fibrillation [Fatal]
  - Skin infection [Fatal]
  - Septic shock [Fatal]
  - Haemorrhage [Unknown]
  - Pruritus [Unknown]
  - Pyrexia [Unknown]
  - Sepsis [Fatal]
  - Oxygen saturation decreased [Fatal]
  - Rash [Unknown]
  - Pustule [Fatal]
  - Multiple organ dysfunction syndrome [Fatal]
  - Cardiac arrest [Fatal]
  - Arrhythmia [Fatal]
  - Cholelithiasis [Fatal]
  - Anaemia [Fatal]
  - Respiratory failure [Fatal]
  - Acute respiratory distress syndrome [Fatal]
  - Pneumonia [Fatal]
  - Hypoalbuminaemia [Fatal]
  - Haemoptysis [Fatal]

NARRATIVE: CASE EVENT DATE: 2020
